FAERS Safety Report 21652430 (Version 2)
Quarter: 2022Q4

REPORT INFORMATION
  Report Type: Spontaneous
  Country: US (occurrence: US)
  Receive Date: 20221128
  Receipt Date: 20221222
  Transmission Date: 20230113
  Serious: No
  Sender: FDA-Public Use
  Company Number: US-BAYER-2022A162682

PATIENT
  Age: 51 Year
  Sex: Female

DRUGS (3)
  1. CLIMARA PRO [Suspect]
     Active Substance: ESTRADIOL\LEVONORGESTREL
     Indication: Hot flush
     Dosage: UNK
     Route: 062
     Dates: start: 20190916
  2. CLONIDINE [Concomitant]
     Active Substance: CLONIDINE
     Indication: Hypertension
     Dosage: UNK
     Dates: start: 20210201
  3. GABAPENTIN [Concomitant]
     Active Substance: GABAPENTIN
     Indication: Hot flush
     Dosage: UNK
     Dates: start: 20210816

REACTIONS (2)
  - Tinnitus [Not Recovered/Not Resolved]
  - Device adhesion issue [None]

NARRATIVE: CASE EVENT DATE: 20190901
